FAERS Safety Report 7092509-X (Version None)
Quarter: 2010Q4

REPORT INFORMATION
  Report Type: 
  Country: None (occurrence: None)
  Receive Date: 20101108
  Receipt Date: 20101108
  Transmission Date: 20110411
  Serious: Yes (Other)
  Sender: FDA-Public Use
  Company Number: None

PATIENT
  Sex: Female
  Weight: 61.4 kg

DRUGS (2)
  1. BUPROPRION 150MG TEVA [Suspect]
     Indication: DEPRESSION
     Dosage: 300 MG ONCE/DAY ORAL
     Route: 048
     Dates: start: 19940101, end: 19960101
  2. BUPROPRION 150MG TEVA [Suspect]
     Indication: DEPRESSION
     Dosage: 300 MG ONCE/DAY ORAL
     Route: 048
     Dates: start: 20080101

REACTIONS (2)
  - DRUG INEFFECTIVE [None]
  - PRODUCT SUBSTITUTION ISSUE [None]
